FAERS Safety Report 23409530 (Version 1)
Quarter: 2024Q1

REPORT INFORMATION
  Report Type: Spontaneous
  Country: US (occurrence: US)
  Receive Date: 20240117
  Receipt Date: 20240117
  Transmission Date: 20240410
  Serious: No
  Sender: FDA-Public Use
  Company Number: US-ELI_LILLY_AND_COMPANY-US202401008102

PATIENT
  Age: 57 Year
  Sex: Female

DRUGS (3)
  1. REYVOW [Suspect]
     Active Substance: LASMIDITAN
     Indication: Migraine
     Dosage: 50 MG, OTHER
     Route: 065
     Dates: start: 2023
  2. REYVOW [Suspect]
     Active Substance: LASMIDITAN
     Dosage: 50 MG, DAILY
     Route: 065
     Dates: start: 2023
  3. NARATRIPTAN [Concomitant]
     Active Substance: NARATRIPTAN HYDROCHLORIDE
     Indication: Product used for unknown indication

REACTIONS (2)
  - Insomnia [Unknown]
  - Somnolence [Unknown]
